FAERS Safety Report 8336002-2 (Version None)
Quarter: 2012Q2

REPORT INFORMATION
  Report Type: 
  Country: None (occurrence: None)
  Receive Date: 20120504
  Receipt Date: 20120424
  Transmission Date: 20120825
  Serious: Yes (Other)
  Sender: FDA-Public Use
  Company Number: JP-VERTEX PHARMACEUTICALS INC.-AE-2012-003094

PATIENT
  Age: 72 Year
  Sex: Female

DRUGS (13)
  1. TELAVIC (TELAPREVIR) [Suspect]
     Indication: HEPATITIS C
     Route: 048
     Dates: start: 20120120, end: 20120215
  2. PEGINTERFERON ALFA-2A [Concomitant]
     Indication: HEPATITIS C
     Route: 058
     Dates: start: 20120120
  3. MOTILIUM [Concomitant]
     Route: 048
     Dates: end: 20120308
  4. TELAVIC (TELAPREVIR) [Suspect]
     Route: 048
     Dates: start: 20120406, end: 20120412
  5. REBETOL [Concomitant]
     Route: 048
     Dates: start: 20120216, end: 20120222
  6. OLMESARTAN MEDOXOMIL [Concomitant]
     Route: 048
     Dates: end: 20120301
  7. TELAVIC (TELAPREVIR) [Suspect]
     Route: 048
     Dates: start: 20120216, end: 20120222
  8. REBETOL [Concomitant]
     Route: 048
     Dates: start: 20120406
  9. DEPAS [Concomitant]
     Route: 048
  10. REBETOL [Concomitant]
     Indication: HEPATITIS C
     Route: 048
     Dates: start: 20120120, end: 20120215
  11. LANSOPRAZOLE [Concomitant]
     Route: 048
  12. PEGINTERFERON ALFA-2A [Concomitant]
     Route: 058
  13. ZETIA [Concomitant]
     Route: 048

REACTIONS (2)
  - HAEMOGLOBIN DECREASED [None]
  - WHITE BLOOD CELL COUNT DECREASED [None]
